FAERS Safety Report 23662617 (Version 1)
Quarter: 2024Q1

REPORT INFORMATION
  Report Type: Spontaneous
  Country: US (occurrence: None)
  Receive Date: 20240321
  Receipt Date: 20240321
  Transmission Date: 20240409
  Serious: Yes (Hospitalization)
  Sender: FDA-Public Use
  Company Number: None

PATIENT
  Age: 43 Year
  Sex: Female
  Weight: 77 kg

DRUGS (2)
  1. HUMIRA [Suspect]
     Active Substance: ADALIMUMAB
     Indication: Colitis ulcerative
     Dosage: OTHER FREQUENCY : ONCE;?
     Route: 058
     Dates: start: 20240124
  2. MIRENA [Suspect]
     Active Substance: LEVONORGESTREL
     Indication: Contraception
     Dosage: FREQUENCY : DAILY;?
     Route: 015

REACTIONS (4)
  - Pulmonary embolism [None]
  - Colitis ulcerative [None]
  - Anaemia [None]
  - Rectal haemorrhage [None]

NARRATIVE: CASE EVENT DATE: 20240130
